FAERS Safety Report 10419291 (Version 1)
Quarter: 2014Q2

REPORT INFORMATION
  Report Type: Spontaneous
  Country: US (occurrence: None)
  Receive Date: 20140625
  Receipt Date: 20140625
  Transmission Date: 20141212
  Serious: No
  Sender: FDA-Public Use
  Company Number: A-US2014-95375

PATIENT
  Age: 70 Year
  Sex: Male

DRUGS (1)
  1. OPSUMIT (MACITENTAN) [Suspect]
     Indication: PULMONARY HYPERTENSION
     Route: 048
     Dates: start: 201402

REACTIONS (3)
  - Nausea [None]
  - Malaise [None]
  - Abdominal discomfort [None]
